FAERS Safety Report 9174272 (Version 2)
Quarter: 2013Q2

REPORT INFORMATION
  Report Type: Spontaneous
  Country: CA (occurrence: CA)
  Receive Date: 20130320
  Receipt Date: 20130517
  Transmission Date: 20140414
  Serious: Yes (Life-Threatening)
  Sender: FDA-Public Use
  Company Number: CA-JNJFOC-20130308123

PATIENT
  Age: 39 Year
  Sex: Male

DRUGS (3)
  1. XARELTO [Suspect]
     Indication: THROMBOPHLEBITIS
     Dosage: 20 MG ONCE DAILY FOR 9 WEEKS.
     Route: 048
  2. XARELTO [Suspect]
     Indication: THROMBOPHLEBITIS
     Dosage: 15MG TWICE A DAY FOR 3 WEEKS.
     Route: 048
     Dates: start: 20121219
  3. CLAVULIN [Concomitant]
     Indication: FURUNCLE
     Route: 065
     Dates: start: 20130227

REACTIONS (1)
  - Pulmonary embolism [Recovering/Resolving]
